FAERS Safety Report 12489669 (Version 2)
Quarter: 2016Q2

REPORT INFORMATION
  Report Type: Report from Study
  Country: JP (occurrence: JP)
  Receive Date: 20160622
  Receipt Date: 20160630
  Transmission Date: 20160815
  Serious: Yes (Death)
  Sender: FDA-Public Use
  Company Number: JP-INCYTE CORPORATION-2016IN003591

PATIENT
  Age: 76 Year
  Sex: Male

DRUGS (2)
  1. RED BLOOD CELLS [Concomitant]
     Active Substance: HUMAN RED BLOOD CELL
     Dosage: UNK
     Route: 065
  2. JAKAFI [Suspect]
     Active Substance: RUXOLITINIB
     Indication: PRIMARY MYELOFIBROSIS
     Dosage: 5 MG, BID
     Route: 048
     Dates: start: 20160520, end: 20160526

REACTIONS (2)
  - Blood pressure diastolic decreased [Unknown]
  - Primary myelofibrosis [Fatal]

NARRATIVE: CASE EVENT DATE: 20160526
